FAERS Safety Report 19924194 (Version 1)
Quarter: 2021Q4

REPORT INFORMATION
  Report Type: Report from Study
  Country: US (occurrence: US)
  Receive Date: 20211005
  Receipt Date: 20211005
  Transmission Date: 20220303
  Serious: Yes (Death, Other)
  Sender: FDA-Public Use
  Company Number: 2021A760154

PATIENT
  Sex: Female

DRUGS (1)
  1. OLAPARIB [Suspect]
     Active Substance: OLAPARIB
     Indication: Ovarian cancer
     Dosage: UNKNOWN
     Route: 048
     Dates: start: 2013

REACTIONS (4)
  - Death [Fatal]
  - Intestinal resection [Unknown]
  - Gastrointestinal anastomotic leak [Unknown]
  - Ileostomy [Unknown]

NARRATIVE: CASE EVENT DATE: 20130101
